FAERS Safety Report 17452306 (Version 1)
Quarter: 2020Q1

REPORT INFORMATION
  Report Type: Spontaneous
  Country: DE (occurrence: DE)
  Receive Date: 20200224
  Receipt Date: 20200224
  Transmission Date: 20200409
  Serious: Yes (Other)
  Sender: FDA-Public Use
  Company Number: DE-MYLANLABS-2020M1018701

PATIENT
  Age: 70 Year
  Sex: Male

DRUGS (2)
  1. GEMCITABINE. [Suspect]
     Active Substance: GEMCITABINE
     Indication: TRANSITIONAL CELL CARCINOMA
     Dosage: UNK UNK, CYCLIC (3 CYCLES)
     Route: 065
     Dates: start: 201706, end: 201709
  2. CISPLATIN. [Suspect]
     Active Substance: CISPLATIN
     Indication: TRANSITIONAL CELL CARCINOMA
     Dosage: UNK, CYCLIC (3 CYCLES)
     Route: 065
     Dates: start: 201706, end: 201709

REACTIONS (1)
  - Urosepsis [Unknown]

NARRATIVE: CASE EVENT DATE: 2017
